FAERS Safety Report 15587009 (Version 1)
Quarter: 2018Q4

REPORT INFORMATION
  Report Type: Spontaneous
  Country: US (occurrence: US)
  Receive Date: 20181105
  Receipt Date: 20181105
  Transmission Date: 20190205
  Serious: Yes (Hospitalization)
  Sender: FDA-Public Use
  Company Number: US-ELI_LILLY_AND_COMPANY-US201810015326

PATIENT
  Age: 74 Year
  Sex: Male

DRUGS (2)
  1. LARTRUVO [Suspect]
     Active Substance: OLARATUMAB
     Indication: PRODUCT USED FOR UNKNOWN INDICATION
     Dosage: 1231.5 MG, UNKNOWN
     Route: 065
     Dates: start: 20181017
  2. LARTRUVO [Suspect]
     Active Substance: OLARATUMAB
     Dosage: 1231.5 MG, UNKNOWN
     Route: 065
     Dates: start: 20181017

REACTIONS (4)
  - Feeling abnormal [Unknown]
  - Loss of consciousness [Unknown]
  - Off label use [Unknown]
  - Dyspnoea [Unknown]
